FAERS Safety Report 9931047 (Version 1)
Quarter: 2014Q1

REPORT INFORMATION
  Report Type: Spontaneous
  Country: US (occurrence: US)
  Receive Date: 20140227
  Receipt Date: 20140227
  Transmission Date: 20141002
  Serious: Yes (Other)
  Sender: FDA-Public Use
  Company Number: PHEH2014US003473

PATIENT
  Sex: Male

DRUGS (9)
  1. TRILEPTAL [Suspect]
     Dosage: UNK UKN, UNK
  2. OXCARBAZEPINE [Suspect]
     Dosage: UNK UKN, UNK
  3. LYRICA [Concomitant]
     Dosage: UNK UKN, UNK
  4. METFORMIN [Concomitant]
     Dosage: UNK UKN, UNK
  5. LISINOPRIL [Concomitant]
     Dosage: UNK UKN, UNK
  6. GLYBURIDE [Concomitant]
     Dosage: UNK UKN, UNK
  7. CRESTOR [Concomitant]
     Dosage: UNK UKN, UNK
  8. FISH OIL [Concomitant]
     Dosage: UNK UKN, UNK
  9. VITAMIN B12 [Concomitant]
     Dosage: UNK UKN, UNK

REACTIONS (2)
  - Convulsion [Unknown]
  - Drug ineffective [Unknown]
